FAERS Safety Report 8159309-0 (Version None)
Quarter: 2012Q1

REPORT INFORMATION
  Report Type: 
  Country: None (occurrence: None)
  Receive Date: 20120223
  Receipt Date: 20120218
  Transmission Date: 20120608
  Serious: Yes (Other)
  Sender: FDA-Public Use
  Company Number: FI-PFIZER INC-2012036559

PATIENT
  Age: 20 Year
  Sex: Female
  Weight: 40 kg

DRUGS (3)
  1. LYRICA [Suspect]
     Dosage: 150 MG, 3X/DAY
     Route: 048
  2. SUBUTEX [Suspect]
     Dosage: UNK
     Dates: start: 20120201
  3. LYRICA [Suspect]
     Dosage: 70 MG, 3X/DAY
     Route: 048
     Dates: end: 20120207

REACTIONS (3)
  - DRUG WITHDRAWAL SYNDROME [None]
  - INTENTIONAL DRUG MISUSE [None]
  - DRUG DEPENDENCE [None]
